FAERS Safety Report 7356495-7 (Version None)
Quarter: 2011Q1

REPORT INFORMATION
  Report Type: 
  Country: None (occurrence: None)
  Receive Date: 20110316
  Receipt Date: 20110302
  Transmission Date: 20110831
  Serious: Yes (Other)
  Sender: FDA-Public Use
  Company Number: PHHY2011BR18356

PATIENT
  Sex: Female

DRUGS (2)
  1. DIOVAN AMLO FIX [Suspect]
     Indication: HYPERTENSION
     Dosage: 1 DF, QD
     Route: 048
  2. GLIMEPIRIDE [Concomitant]
     Indication: DIABETES MELLITUS
     Dosage: 2 DF, QD
     Dates: start: 20110210

REACTIONS (7)
  - FALL [None]
  - HEADACHE [None]
  - BLOOD GLUCOSE INCREASED [None]
  - MUSCLE CONTRACTURE [None]
  - PAIN [None]
  - BLOOD PRESSURE INADEQUATELY CONTROLLED [None]
  - HYPERTENSION [None]
